FAERS Safety Report 26114782 (Version 1)
Quarter: 2025Q4

REPORT INFORMATION
  Report Type: Spontaneous
  Country: BR (occurrence: BR)
  Receive Date: 20251203
  Receipt Date: 20251203
  Transmission Date: 20260117
  Serious: Yes (Hospitalization, Other)
  Sender: JOHNSON AND JOHNSON
  Company Number: BR-JNJFOC-20251200926

PATIENT
  Age: 24 Year
  Sex: Female

DRUGS (1)
  1. INFLIXIMAB [Suspect]
     Active Substance: INFLIXIMAB
     Indication: Crohn^s disease
     Route: 041

REACTIONS (6)
  - Psychotic disorder [Unknown]
  - Seizure [Unknown]
  - Anal abscess [Unknown]
  - Crohn^s disease [Not Recovered/Not Resolved]
  - Anal fistula [Unknown]
  - Drug ineffective [Unknown]
